FAERS Safety Report 21314524 (Version 1)
Quarter: 2022Q3

REPORT INFORMATION
  Report Type: Spontaneous
  Country: US (occurrence: None)
  Receive Date: 20220909
  Receipt Date: 20220909
  Transmission Date: 20221027
  Serious: Yes (Hospitalization)
  Sender: FDA-Public Use
  Company Number: None

PATIENT
  Sex: Female

DRUGS (1)
  1. AMBRISENTAN [Suspect]
     Active Substance: AMBRISENTAN
     Indication: Pulmonary arterial hypertension
     Dosage: FREQUENCY : DAILY;?
     Route: 048
     Dates: start: 20180408

REACTIONS (6)
  - Injection site pain [None]
  - Injection site infection [None]
  - Pulmonary arterial hypertension [None]
  - Condition aggravated [None]
  - Blood iron abnormal [None]
  - Oxygen saturation decreased [None]
